FAERS Safety Report 25124936 (Version 1)
Quarter: 2025Q1

REPORT INFORMATION
  Report Type: Spontaneous
  Country: PL (occurrence: PL)
  Receive Date: 20250326
  Receipt Date: 20250326
  Transmission Date: 20250408
  Serious: Yes (Hospitalization, Other)
  Sender: SANOFI AVENTIS
  Company Number: PL-MLMSERVICE-20250306-PI438218-00064-1

PATIENT
  Age: 29 Year
  Sex: Female
  Weight: 118 kg

DRUGS (6)
  1. BETAMETHASONE [Suspect]
     Active Substance: BETAMETHASONE
     Indication: Adrenocortical steroid therapy
  2. ENOXAPARIN SODIUM [Suspect]
     Active Substance: ENOXAPARIN SODIUM
     Indication: Prophylaxis
     Dosage: 40 MG, QD
  3. INSULIN ASPART [Suspect]
     Active Substance: INSULIN ASPART
     Indication: Gestational diabetes
  4. ATOSIBAN [Suspect]
     Active Substance: ATOSIBAN
     Route: 042
  5. INSULIN NOS [Suspect]
     Active Substance: INSULIN NOS
     Indication: Gestational diabetes
     Dosage: 6 U, HS
  6. LEVEMIR [Suspect]
     Active Substance: INSULIN DETEMIR
     Indication: Gestational diabetes
     Dosage: 16 U, HS

REACTIONS (6)
  - Gestational diabetes [Unknown]
  - Glycosuria [Unknown]
  - Hyperglycaemia [Unknown]
  - Ketonuria [Unknown]
  - Malaise [Unknown]
  - Exposure during pregnancy [Unknown]
